FAERS Safety Report 18772190 (Version 1)
Quarter: 2021Q1

REPORT INFORMATION
  Report Type: Spontaneous
  Country: US (occurrence: US)
  Receive Date: 20210121
  Receipt Date: 20210121
  Transmission Date: 20210419
  Serious: No
  Sender: FDA-Public Use
  Company Number: US-PERRIGO-20US013737

PATIENT
  Age: 73 Year
  Sex: Female
  Weight: 63.49 kg

DRUGS (8)
  1. ENTRESTO [Concomitant]
     Active Substance: SACUBITRIL\VALSARTAN
     Indication: MYOCARDIAL INFARCTION
     Dosage: UNKNOWN, UNKNOWN
     Route: 048
     Dates: start: 2018
  2. NYSTATIN. [Suspect]
     Active Substance: NYSTATIN
     Indication: FUNGAL SKIN INFECTION
     Dosage: LIBERAL AMOUNT, BID
     Route: 061
     Dates: start: 20200919, end: 20200920
  3. FUROSEMIDE. [Concomitant]
     Active Substance: FUROSEMIDE
     Indication: MYOCARDIAL INFARCTION
     Dosage: UNKNOWN, UNKNOWN
     Route: 048
     Dates: start: 2018
  4. SPIRONOLACTONE. [Concomitant]
     Active Substance: SPIRONOLACTONE
     Indication: MYOCARDIAL INFARCTION
     Dosage: UNKNOWN, UNKNOWN
     Route: 048
     Dates: start: 2018
  5. ATORVASTATIN CALCIUM. [Concomitant]
     Active Substance: ATORVASTATIN CALCIUM
     Indication: MYOCARDIAL INFARCTION
     Dosage: UNKNOWN, UNKNOWN
     Route: 048
     Dates: start: 2018
  6. LYRICA [Concomitant]
     Active Substance: PREGABALIN
     Indication: HERPES ZOSTER
     Dosage: UNK
     Route: 065
     Dates: start: 202008
  7. CARVEDILOL. [Concomitant]
     Active Substance: CARVEDILOL
     Indication: MYOCARDIAL INFARCTION
     Dosage: UNKNOWN, UNKNOWN
     Route: 048
     Dates: start: 2018
  8. CLOPIDOGREL [Concomitant]
     Active Substance: CLOPIDOGREL BISULFATE
     Indication: MYOCARDIAL INFARCTION
     Dosage: UNKNOWN, UNKNOWN
     Route: 048
     Dates: start: 2018

REACTIONS (4)
  - Application site rash [Recovered/Resolved]
  - Application site burn [Recovering/Resolving]
  - Application site erythema [Recovered/Resolved]
  - Application site pain [Recovering/Resolving]

NARRATIVE: CASE EVENT DATE: 20200920
